FAERS Safety Report 25317251 (Version 2)
Quarter: 2025Q2

REPORT INFORMATION
  Report Type: Spontaneous
  Country: NO (occurrence: NO)
  Receive Date: 20250515
  Receipt Date: 20250520
  Transmission Date: 20250716
  Serious: Yes (Other)
  Sender: BRISTOL-MYERS SQUIBB COMPANY
  Company Number: NO-BRISTOL-MYERS SQUIBB COMPANY-2025-066358

PATIENT

DRUGS (4)
  1. NIVOLUMAB [Suspect]
     Active Substance: NIVOLUMAB
     Indication: Malignant melanoma
     Dates: start: 20241202
  2. NIVOLUMAB [Suspect]
     Active Substance: NIVOLUMAB
     Dates: start: 20241219
  3. IPILIMUMAB [Suspect]
     Active Substance: IPILIMUMAB
     Indication: Malignant melanoma
     Dates: start: 20241202
  4. IPILIMUMAB [Suspect]
     Active Substance: IPILIMUMAB
     Dates: start: 20241219

REACTIONS (5)
  - Malignant neoplasm progression [Unknown]
  - Vasogenic cerebral oedema [Unknown]
  - Drug hypersensitivity [Recovered/Resolved]
  - Speech disorder [Unknown]
  - Tumour pseudoprogression [Unknown]

NARRATIVE: CASE EVENT DATE: 20241219
